FAERS Safety Report 10963160 (Version 1)
Quarter: 2015Q1

REPORT INFORMATION
  Report Type: Spontaneous
  Country: US (occurrence: US)
  Receive Date: 20150205
  Receipt Date: 20150205
  Transmission Date: 20150721
  Serious: Yes (Death, Hospitalization)
  Sender: FDA-Public Use
  Company Number: US-APOTEX-2015AP006141

PATIENT
  Age: 34 Year
  Sex: Female

DRUGS (13)
  1. ACETAMINOPHEN W/HYDROCODONE [Suspect]
     Active Substance: ACETAMINOPHEN\HYDROCODONE
  2. GABAPENTIN. [Suspect]
     Active Substance: GABAPENTIN
  3. AMITRIPTYLINE [Suspect]
     Active Substance: AMITRIPTYLINE
  4. DICLOFENAC [Suspect]
     Active Substance: DICLOFENAC
  5. ESCITALOPRAM OXALATE. [Suspect]
     Active Substance: ESCITALOPRAM OXALATE
  6. LINACLOTIDE [Suspect]
     Active Substance: LINACLOTIDE
  7. LUBIPROSTONE [Suspect]
     Active Substance: LUBIPROSTONE
  8. TRAMADOL HYDROCHLORIDE. [Suspect]
     Active Substance: TRAMADOL HYDROCHLORIDE
  9. ONDANSETRON HYDROCHLORIDE. [Suspect]
     Active Substance: ONDANSETRON HYDROCHLORIDE
  10. SERTRALINE HYDROCHLORIDE. [Suspect]
     Active Substance: SERTRALINE HYDROCHLORIDE
  11. TRAMADOL HYDROCHLORIDE. [Suspect]
     Active Substance: TRAMADOL HYDROCHLORIDE
  12. ZOLPIDEM TARTRATE. [Suspect]
     Active Substance: ZOLPIDEM TARTRATE
  13. LIOTHYRONINE [Suspect]
     Active Substance: LIOTHYRONINE

REACTIONS (2)
  - Completed suicide [Fatal]
  - Cardio-respiratory arrest [Fatal]
